FAERS Safety Report 7247016-8 (Version None)
Quarter: 2011Q1

REPORT INFORMATION
  Report Type: 
  Country: None (occurrence: None)
  Receive Date: 20110127
  Receipt Date: 20110112
  Transmission Date: 20110831
  Serious: Yes (Other)
  Sender: FDA-Public Use
  Company Number: KR-BAUSCH-2011BL000220

PATIENT
  Age: 42 Year
  Sex: Male
  Weight: 76 kg

DRUGS (3)
  1. FLUOCINOLONE ACETONIDE [Suspect]
     Indication: BEHCET'S SYNDROME
     Route: 047
     Dates: start: 20090325
  2. PREDNISOLONE [Concomitant]
     Route: 048
     Dates: start: 20070201, end: 20091201
  3. CYCLOSPORINE [Concomitant]
     Route: 048
     Dates: start: 20070201, end: 20091201

REACTIONS (1)
  - CYTOMEGALOVIRUS INFECTION [None]
